FAERS Safety Report 23080889 (Version 1)
Quarter: 2023Q4

REPORT INFORMATION
  Report Type: Spontaneous
  Country: US (occurrence: None)
  Receive Date: 20231018
  Receipt Date: 20231018
  Transmission Date: 20240110
  Serious: Yes (Hospitalization)
  Sender: FDA-Public Use
  Company Number: None

PATIENT
  Age: 77 Year
  Sex: Male

DRUGS (2)
  1. METOPROLOL TARTRATE [Suspect]
     Active Substance: METOPROLOL TARTRATE
     Dosage: FREQUENCY : TWICE A DAY;?
     Route: 048
     Dates: start: 20090622, end: 20220909
  2. MIRABEGRON [Suspect]
     Active Substance: MIRABEGRON
     Route: 048
     Dates: start: 20220722, end: 20220909

REACTIONS (5)
  - Bradycardia [None]
  - Dizziness postural [None]
  - Presyncope [None]
  - Product use issue [None]
  - Negative cardiac inotropic effect [None]

NARRATIVE: CASE EVENT DATE: 20220907
